FAERS Safety Report 20124642 (Version 1)
Quarter: 2021Q4

REPORT INFORMATION
  Report Type: Spontaneous
  Country: FR (occurrence: FR)
  Receive Date: 20211129
  Receipt Date: 20211129
  Transmission Date: 20220303
  Serious: Yes (Death)
  Sender: FDA-Public Use
  Company Number: None

PATIENT
  Age: 43 Year
  Sex: Male

DRUGS (6)
  1. SILDENAFIL CITRATE [Suspect]
     Active Substance: SILDENAFIL CITRATE
     Dosage: DOSES AND FREQUENCIES OF CONSUMPTION UNKNOWN
     Route: 065
  2. BUTYROLACTONE [Suspect]
     Active Substance: BUTYROLACTONE
     Dosage: DOSES AND FREQUENCIES OF CONSUMPTION UNKNOWN
     Route: 048
  3. CANNABIS SATIVA SUBSP. INDICA TOP [Suspect]
     Active Substance: CANNABIS SATIVA SUBSP. INDICA TOP
     Dosage: DOSES AND FREQUENCIES OF CONSUMPTION UNKNOWN
     Route: 065
  4. MEPHEDRONE [Suspect]
     Active Substance: MEPHEDRONE
     Dosage: DOSES AND FREQUENCIES OF CONSUMPTION UNKNOWN
     Route: 065
  5. NEFOPAM HYDROCHLORIDE [Suspect]
     Active Substance: NEFOPAM HYDROCHLORIDE
     Dosage: DOSES AND FREQUENCIES OF CONSUMPTION UNKNOWN
     Route: 065
  6. UNSPECIFIED INGREDIENT [Suspect]
     Active Substance: UNSPECIFIED INGREDIENT
     Dosage: DOSES AND FREQUENCIES OF CONSUMPTION UNKNOWN
     Route: 065

REACTIONS (2)
  - Cardio-respiratory arrest [Fatal]
  - Substance abuse [Fatal]

NARRATIVE: CASE EVENT DATE: 20211030
